FAERS Safety Report 19360949 (Version 2)
Quarter: 2022Q2

REPORT INFORMATION
  Report Type: Report from Study
  Country: US (occurrence: None)
  Receive Date: 20210602
  Receipt Date: 20220615
  Transmission Date: 20220721
  Serious: No
  Sender: FDA-Public Use
  Company Number: US-MDD US OPERATIONS-MDD202101-000143

PATIENT
  Age: 73 Year
  Sex: Female

DRUGS (7)
  1. APOKYN [Suspect]
     Active Substance: APOMORPHINE HYDROCHLORIDE
     Indication: Parkinson^s disease
     Dosage: NOT PROVIDED
     Route: 058
  2. APOKYN [Suspect]
     Active Substance: APOMORPHINE HYDROCHLORIDE
     Route: 058
     Dates: start: 20190823, end: 20210604
  3. APOKYN [Suspect]
     Active Substance: APOMORPHINE HYDROCHLORIDE
  4. APOKYN [Suspect]
     Active Substance: APOMORPHINE HYDROCHLORIDE
  5. RYTARY [Concomitant]
     Active Substance: CARBIDOPA\LEVODOPA
     Dosage: NOT PROVIDED
  6. TYLENOL [Concomitant]
     Active Substance: ACETAMINOPHEN
     Dosage: NOT PROVIDED
  7. INSULIN NOS [Concomitant]
     Active Substance: INSULIN NOS
     Dosage: NOT PROVIDED

REACTIONS (7)
  - Muscle twitching [Recovered/Resolved]
  - Facial paralysis [Recovered/Resolved]
  - Dyskinesia [Recovered/Resolved]
  - Catatonia [Recovered/Resolved]
  - Syncope [Recovered/Resolved]
  - Dizziness [Recovered/Resolved]
  - Dyskinesia [Recovered/Resolved]

NARRATIVE: CASE EVENT DATE: 20210120
